FAERS Safety Report 9665458 (Version 1)
Quarter: 2013Q4

REPORT INFORMATION
  Report Type: Spontaneous
  Country: US (occurrence: US)
  Receive Date: 20131104
  Receipt Date: 20131104
  Transmission Date: 20140711
  Serious: No
  Sender: FDA-Public Use
  Company Number: US-PFIZER INC-2013311897

PATIENT
  Age: 54 Year
  Sex: Female
  Weight: 63.49 kg

DRUGS (1)
  1. CELEBREX [Suspect]
     Indication: OSTEOARTHRITIS
     Dosage: TWO PILLS DAILY
     Dates: start: 201205, end: 201310

REACTIONS (4)
  - Pain [Unknown]
  - Insomnia [Unknown]
  - Activities of daily living impaired [Unknown]
  - Quality of life decreased [Unknown]
